FAERS Safety Report 19846594 (Version 2)
Quarter: 2021Q4

REPORT INFORMATION
  Report Type: Report from Study
  Country: None (occurrence: US)
  Receive Date: 20210917
  Receipt Date: 20211011
  Transmission Date: 20220303
  Serious: Yes (Other)
  Sender: FDA-Public Use
  Company Number: US-ABBVIE-21K-163-4073370-00

PATIENT
  Age: 77 Year
  Sex: Male
  Weight: 76.27 kg

DRUGS (4)
  1. HUMIRA [Suspect]
     Active Substance: ADALIMUMAB
     Indication: Crohn^s disease
     Dosage: SIX TO SEVEN MONTHS
     Route: 058
     Dates: start: 2018, end: 2019
  2. HUMIRA [Suspect]
     Active Substance: ADALIMUMAB
     Indication: Rheumatoid arthritis
     Route: 058
     Dates: start: 20191107
  3. MODERNA COVID-19 VACCINE [Suspect]
     Active Substance: CX-024414
     Indication: COVID-19 immunisation
     Route: 058
     Dates: start: 202102, end: 202102
  4. MODERNA COVID-19 VACCINE [Suspect]
     Active Substance: CX-024414
     Route: 058
     Dates: start: 202103, end: 202103

REACTIONS (13)
  - Dizziness [Recovered/Resolved]
  - Hormone level abnormal [Unknown]
  - Cardiac stress test abnormal [Unknown]
  - Condition aggravated [Recovered/Resolved]
  - Drug ineffective [Recovered/Resolved]
  - Abdominal discomfort [Recovered/Resolved]
  - Diarrhoea [Recovered/Resolved]
  - Nervousness [Unknown]
  - Gynaecomastia [Unknown]
  - Drug specific antibody present [Recovered/Resolved]
  - Pruritus [Recovered/Resolved]
  - Dehydration [Recovered/Resolved]
  - Gastrointestinal inflammation [Recovered/Resolved]

NARRATIVE: CASE EVENT DATE: 20190101
